FAERS Safety Report 25756240 (Version 1)
Quarter: 2025Q3

REPORT INFORMATION
  Report Type: Other
  Country: GB (occurrence: GB)
  Receive Date: 20250903
  Receipt Date: 20250903
  Transmission Date: 20251021
  Serious: Yes (Other)
  Sender: GLENMARK
  Company Number: None

PATIENT
  Age: 45 Year
  Weight: 58 kg

DRUGS (1)
  1. ATOVAQUONE\PROGUANIL HYDROCHLORIDE [Suspect]
     Active Substance: ATOVAQUONE\PROGUANIL HYDROCHLORIDE
     Indication: Malaria prophylaxis
     Route: 065
     Dates: start: 20250619

REACTIONS (7)
  - Swelling of eyelid [Recovered/Resolved]
  - Skin exfoliation [Recovered/Resolved]
  - Genital lesion [Recovered/Resolved]
  - Headache [Recovered/Resolved]
  - Pyrexia [Recovered/Resolved]
  - Diarrhoea [Recovered/Resolved]
  - Rash [Recovered/Resolved]

NARRATIVE: CASE EVENT DATE: 20250621
